FAERS Safety Report 23376556 (Version 8)
Quarter: 2025Q2

REPORT INFORMATION
  Report Type: Spontaneous
  Country: US (occurrence: US)
  Receive Date: 20240108
  Receipt Date: 20250602
  Transmission Date: 20250717
  Serious: Yes (Other)
  Sender: SANOFI AVENTIS
  Company Number: US-SA-SAC20240102000069

PATIENT
  Age: 66 Year
  Sex: Female

DRUGS (2)
  1. DUPIXENT [Suspect]
     Active Substance: DUPILUMAB
     Indication: Dermatitis atopic
     Route: 058
     Dates: start: 20231204, end: 20231204
  2. DUPIXENT [Suspect]
     Active Substance: DUPILUMAB
     Dosage: 300 MG, QOW
     Route: 058
     Dates: start: 20231219

REACTIONS (11)
  - Loss of consciousness [Not Recovered/Not Resolved]
  - Injection site vesicles [Recovered/Resolved]
  - Scab [Unknown]
  - Hypoaesthesia [Not Recovered/Not Resolved]
  - Eczema [Unknown]
  - Drug ineffective [Unknown]
  - Pruritus [Unknown]
  - Rash [Unknown]
  - Injection site pain [Unknown]
  - Incorrect dose administered [Unknown]
  - Poor quality product administered [Unknown]

NARRATIVE: CASE EVENT DATE: 20231201
